FAERS Safety Report 5279243-3 (Version None)
Quarter: 2007Q1

REPORT INFORMATION
  Report Type: 
  Country: None (occurrence: None)
  Receive Date: 20070322
  Receipt Date: 20070309
  Transmission Date: 20070707
  Serious: Yes (Hospitalization)
  Sender: FDA-Public Use
  Company Number: 2007-00523

PATIENT
  Age: 65 Year
  Sex: Male
  Weight: 62 kg

DRUGS (7)
  1. VELCADE [Suspect]
     Indication: MULTIPLE MYELOMA
  2. DOXORUBICIN HCL [Suspect]
     Indication: MULTIPLE MYELOMA
     Dosage: 60.00 MG, , INTRAVENOUS
     Route: 042
     Dates: start: 20070213
  3. DEXAMETHASONE [Suspect]
     Indication: MULTIPLE MYELOMA
  4. DAPSONE [Concomitant]
  5. FAMCICLOVIR (FAMCICLOVIR) [Concomitant]
  6. FLUCONAZOLE [Concomitant]
  7. ACYCLOVIR [Concomitant]

REACTIONS (6)
  - COUGH [None]
  - MUCOSAL INFLAMMATION [None]
  - ODYNOPHAGIA [None]
  - ORAL INTAKE REDUCED [None]
  - PNEUMONIA [None]
  - STOMATITIS [None]
